APPROVED DRUG PRODUCT: DILTZAC
Active Ingredient: DILTIAZEM HYDROCHLORIDE
Strength: 240MG
Dosage Form/Route: CAPSULE, EXTENDED RELEASE;ORAL
Application: A076395 | Product #003
Applicant: APOTEX INC
Approved: Feb 1, 2006 | RLD: No | RS: No | Type: DISCN